FAERS Safety Report 5878549-4 (Version None)
Quarter: 2008Q3

REPORT INFORMATION
  Report Type: 
  Country: None (occurrence: None)
  Receive Date: 20080909
  Receipt Date: 20080825
  Transmission Date: 20090109
  Serious: Yes (Other)
  Sender: FDA-Public Use
  Company Number: 1000000806

PATIENT
  Age: 61 Year
  Sex: Female
  Weight: 82.6 kg

DRUGS (1)
  1. ESCITALOPRAM [Suspect]

REACTIONS (5)
  - ANOREXIA [None]
  - DRY MOUTH [None]
  - DYSPEPSIA [None]
  - ENZYME ABNORMALITY [None]
  - WEIGHT DECREASED [None]
